FAERS Safety Report 17043325 (Version 2)
Quarter: 2019Q4

REPORT INFORMATION
  Report Type: Spontaneous
  Country: US (occurrence: US)
  Receive Date: 20191118
  Receipt Date: 20191218
  Transmission Date: 20200122
  Serious: No
  Sender: FDA-Public Use
  Company Number: US-BAUSCH-BL-2019-057888

PATIENT
  Age: 71 Year
  Sex: Male
  Weight: 79 kg

DRUGS (11)
  1. BENAZEPRIL [Concomitant]
     Active Substance: BENAZEPRIL HYDROCHLORIDE
     Indication: BLOOD PRESSURE ABNORMAL
     Dosage: USING IT FOR 5 YEARS
     Route: 048
     Dates: start: 2014
  2. OMEPRAZOLE. [Concomitant]
     Active Substance: OMEPRAZOLE
     Indication: GASTROOESOPHAGEAL REFLUX DISEASE
     Dosage: USING IT FOR 5 YEARS
     Route: 048
     Dates: start: 2014
  3. ZOLPIDEM [Concomitant]
     Active Substance: ZOLPIDEM TARTRATE
     Indication: SLEEP DISORDER
     Dosage: USING IT FOR 5 YEARS
     Route: 048
     Dates: start: 2014
  4. CREON [Concomitant]
     Active Substance: PANCRELIPASE AMYLASE\PANCRELIPASE LIPASE\PANCRELIPASE PROTEASE
     Indication: ROUTINE HEALTH MAINTENANCE
     Dosage: HAS BEEN 3 YEARS, 36000 UNITS
     Route: 048
     Dates: start: 2016
  5. OXYCODONE [Concomitant]
     Active Substance: OXYCODONE
     Indication: BACK PAIN
     Dosage: 4 TO 5 YEARS
     Route: 048
  6. SIMVASTATIN. [Concomitant]
     Active Substance: SIMVASTATIN
     Indication: BLOOD CHOLESTEROL ABNORMAL
     Dosage: SINCE LONG TIME PATIENT WAS USING
     Route: 048
  7. RELISTOR [Suspect]
     Active Substance: METHYLNALTREXONE BROMIDE
     Indication: CONSTIPATION
     Dosage: FOR 9 MONTHS ?0.6 ML PER SYRINGE
     Route: 058
     Dates: start: 201902, end: 2019
  8. MIRALAX [Suspect]
     Active Substance: POLYETHYLENE GLYCOL 3350
     Indication: CONSTIPATION
     Route: 048
  9. RELISTOR [Suspect]
     Active Substance: METHYLNALTREXONE BROMIDE
     Dosage: FOR THE PAST FEW DAYS (DOSE INCREASED)
     Route: 058
     Dates: start: 201910
  10. FENTANYL TRANSDERMAL SYSTEM [Concomitant]
     Active Substance: FENTANYL
     Indication: BACK PAIN
     Dosage: HAS BEEN 6 MONTHS
     Route: 061
     Dates: start: 201905
  11. ZOFRAN [Concomitant]
     Active Substance: ONDANSETRON HYDROCHLORIDE
     Indication: NAUSEA
     Dosage: HAS BEEN 5 YEARS, REPORTER THOUGHT IT WAS 15 MG
     Route: 048
     Dates: start: 2014

REACTIONS (4)
  - Inappropriate schedule of product administration [Unknown]
  - Decreased appetite [Not Recovered/Not Resolved]
  - Weight decreased [Not Recovered/Not Resolved]
  - Therapeutic product effect incomplete [Unknown]

NARRATIVE: CASE EVENT DATE: 2019
